FAERS Safety Report 9222730 (Version 1)
Quarter: 2013Q1

REPORT INFORMATION
  Report Type: Spontaneous
  Country: US (occurrence: US)
  Receive Date: 20120914
  Receipt Date: 20120914
  Transmission Date: 20140127
  Serious: Yes (Other)
  Sender: FDA-Public Use
  Company Number: JPI-P-016895

PATIENT
  Age: 54 Year
  Sex: Female
  Weight: 74.84 kg

DRUGS (5)
  1. XYREM (500 MG/ML SOLUTION)(SODIUM OXYBATE) [Suspect]
     Indication: FIBROMYALGIA
     Route: 048
     Dates: start: 20090708
  2. ACETAMINOPHEN W/OXYCODONE [Concomitant]
  3. TRAZODONE HYDROCHLORIDE [Concomitant]
  4. DULOXETINE HYDROCHLORIDE [Concomitant]
  5. TIZANIDINE HYDROCHLORIDE [Concomitant]

REACTIONS (2)
  - Fall [None]
  - Ankle fracture [None]
